FAERS Safety Report 18125393 (Version 1)
Quarter: 2020Q3

REPORT INFORMATION
  Report Type: Spontaneous
  Country: US (occurrence: US)
  Receive Date: 20200807
  Receipt Date: 20200807
  Transmission Date: 20201103
  Serious: Yes (Life-Threatening, Other)
  Sender: FDA-Public Use
  Company Number: US-OTSUKA-2017_004082

PATIENT

DRUGS (4)
  1. DECITABINE. [Suspect]
     Active Substance: DECITABINE
     Dosage: FOR 10 DAYS (TARGET DOSE) (20 MG/M2,1 D)
     Route: 042
  2. DECITABINE. [Suspect]
     Active Substance: DECITABINE
     Indication: CHRONIC MYELOID LEUKAEMIA
     Dosage: FOR 10 DAYS (SCHEDULE B) (20 MG/M2,1 D)????
     Route: 042
  3. DASATINIB. [Suspect]
     Active Substance: DASATINIB
     Indication: CHRONIC MYELOID LEUKAEMIA
     Dosage: 28?DAY CYCLE (SCHEDULE B) (100 MG,1 D)
     Route: 048
  4. DASATINIB. [Suspect]
     Active Substance: DASATINIB
     Indication: ACUTE MYELOID LEUKAEMIA
     Dosage: TARGET DOSE (140 MG,1 D)
     Route: 048

REACTIONS (3)
  - Cardiac arrest [Unknown]
  - Off label use [Unknown]
  - Product use in unapproved indication [Unknown]
